FAERS Safety Report 15994084 (Version 1)
Quarter: 2019Q1

REPORT INFORMATION
  Report Type: Spontaneous
  Country: AR (occurrence: AR)
  Receive Date: 20190222
  Receipt Date: 20190222
  Transmission Date: 20190418
  Serious: Yes (Hospitalization, Other)
  Sender: FDA-Public Use
  Company Number: AR-GLAXOSMITHKLINE-AR2019GSK028463

PATIENT
  Age: 44 Year
  Sex: Female

DRUGS (5)
  1. BUPROPION. [Suspect]
     Active Substance: BUPROPION
     Indication: BIPOLAR DISORDER
     Dosage: 4.5 G, UNK
  2. LAMOTRIGINE. [Suspect]
     Active Substance: LAMOTRIGINE
     Indication: BIPOLAR DISORDER
     Dosage: 2 G, UNK
  3. RISPERIDONE. [Suspect]
     Active Substance: RISPERIDONE
     Indication: BIPOLAR DISORDER
     Dosage: 10 MG, UNK
  4. SERTRALINE [Suspect]
     Active Substance: SERTRALINE HYDROCHLORIDE
     Indication: BIPOLAR DISORDER
     Dosage: 4 G, UNK
  5. PREGABALIN. [Suspect]
     Active Substance: PREGABALIN
     Indication: BIPOLAR DISORDER
     Dosage: 1.3 G, UNK

REACTIONS (10)
  - Serotonin syndrome [Unknown]
  - Neurological decompensation [Unknown]
  - Hypertonia [Unknown]
  - Generalised tonic-clonic seizure [Unknown]
  - Mydriasis [Unknown]
  - Myoclonus [Unknown]
  - Clonic convulsion [Unknown]
  - Overdose [Unknown]
  - Hypotension [Unknown]
  - Hyperreflexia [Unknown]
